FAERS Safety Report 9015933 (Version 1)
Quarter: 2013Q1

REPORT INFORMATION
  Report Type: Spontaneous
  Country: CA (occurrence: CA)
  Receive Date: 20130116
  Receipt Date: 20130116
  Transmission Date: 20140127
  Serious: Yes (Hospitalization)
  Sender: FDA-Public Use
  Company Number: CA-AMGEN-CANSP2013002601

PATIENT
  Age: 63 Year
  Sex: Female

DRUGS (1)
  1. ENBREL [Suspect]
     Indication: PSORIATIC ARTHROPATHY
     Dosage: UNK
     Dates: start: 20060914, end: 20120601

REACTIONS (4)
  - Impaired healing [Recovering/Resolving]
  - Infection reactivation [Recovering/Resolving]
  - Upper limb fracture [Recovering/Resolving]
  - Postoperative wound infection [Recovering/Resolving]
